FAERS Safety Report 8826195 (Version 1)
Quarter: 2012Q4

REPORT INFORMATION
  Report Type: 
  Country: US (occurrence: US)
  Receive Date: 20121005
  Receipt Date: 20121005
  Transmission Date: 20130627
  Serious: Yes (Death)
  Sender: FDA-Public Use
  Company Number: PHEH2012US019406

PATIENT
  Age: 82 Year
  Sex: Male

DRUGS (1)
  1. GLEEVEC [Suspect]
     Dosage: 400 mg, BID
     Route: 048
     Dates: start: 20120707

REACTIONS (1)
  - Death [Fatal]
